FAERS Safety Report 11164550 (Version 2)
Quarter: 2015Q3

REPORT INFORMATION
  Report Type: Spontaneous
  Country: BR (occurrence: BR)
  Receive Date: 20150604
  Receipt Date: 20150713
  Transmission Date: 20151125
  Serious: Yes (Hospitalization, Other)
  Sender: FDA-Public Use
  Company Number: BR-ELI_LILLY_AND_COMPANY-BR201505008902

PATIENT
  Sex: Male
  Weight: 110 kg

DRUGS (9)
  1. HUMULIN N [Suspect]
     Active Substance: INSULIN HUMAN
     Indication: TYPE 1 DIABETES MELLITUS
     Dosage: 38 IU, EACH MORNING
     Route: 058
  2. VIGADEXA [Concomitant]
     Active Substance: DEXAMETHASONE SODIUM PHOSPHATE\MOXIFLOXACIN HYDROCHLORIDE
     Indication: BLINDNESS
     Dosage: UNK, UNKNOWN
     Route: 065
  3. HUMULIN N [Suspect]
     Active Substance: INSULIN HUMAN
     Dosage: 14 IU, BEFORE LUNCH
     Route: 058
  4. THIOCTACID                         /00213801/ [Concomitant]
     Active Substance: .ALPHA.-LIPOIC ACID
     Indication: LIMB INJURY
     Dosage: UNK, UNKNOWN
     Route: 065
  5. NEVANAC [Concomitant]
     Active Substance: NEPAFENAC
     Indication: BLINDNESS
     Dosage: UNK, UNKNOWN
     Route: 065
  6. HUMALOG [Suspect]
     Active Substance: INSULIN LISPRO
     Indication: PRODUCT USED FOR UNKNOWN INDICATION
     Dosage: UNK, UNKNOWN
     Route: 065
  7. MAREVAN [Suspect]
     Active Substance: WARFARIN SODIUM
     Indication: LIMB INJURY
     Dosage: UNK, UNKNOWN
     Route: 065
  8. MILGAMMA                           /00089801/ [Concomitant]
     Indication: LIMB INJURY
     Dosage: UNK, UNKNOWN
     Route: 065
  9. HUMULIN N [Suspect]
     Active Substance: INSULIN HUMAN
     Dosage: 12 IU, BEFORE DINNER
     Route: 058

REACTIONS (8)
  - Blindness [Not Recovered/Not Resolved]
  - Cataract [Unknown]
  - Drug dose omission [Recovered/Resolved]
  - Limb injury [Unknown]
  - Hyperglycaemia [Not Recovered/Not Resolved]
  - Eye haemorrhage [Unknown]
  - Blood glucose fluctuation [Not Recovered/Not Resolved]
  - Neuropathic arthropathy [Recovering/Resolving]
